FAERS Safety Report 23460496 (Version 1)
Quarter: 2024Q1

REPORT INFORMATION
  Report Type: Spontaneous
  Country: US (occurrence: US)
  Receive Date: 20240131
  Receipt Date: 20240131
  Transmission Date: 20240410
  Serious: Yes (Other)
  Sender: FDA-Public Use
  Company Number: US-HIKMA PHARMACEUTICALS USA INC.-US-H14001-23-64977

PATIENT
  Sex: Male
  Weight: 113.38 kg

DRUGS (1)
  1. PREDNISONE [Suspect]
     Active Substance: PREDNISONE
     Indication: Product used for unknown indication
     Dosage: UNK
     Route: 065

REACTIONS (6)
  - Exophthalmos [Unknown]
  - Pharyngeal swelling [Unknown]
  - Skin disorder [Unknown]
  - Tongue injury [Unknown]
  - Weight increased [Unknown]
  - Cushingoid [Unknown]
